FAERS Safety Report 9809331 (Version 3)
Quarter: 2014Q3

REPORT INFORMATION
  Report Type: Spontaneous
  Country: US (occurrence: US)
  Receive Date: 20140110
  Receipt Date: 20140918
  Transmission Date: 20150326
  Serious: Yes (Hospitalization, Other)
  Sender: FDA-Public Use
  Company Number: US-009507513-1401USA004111

PATIENT
  Sex: Female
  Weight: 97.51 kg

DRUGS (2)
  1. NUVARING [Suspect]
     Active Substance: ETHINYL ESTRADIOL\ETONOGESTREL
     Indication: ENDOMETRIOSIS
     Dosage: UNK
     Route: 067
  2. NUVARING [Suspect]
     Active Substance: ETHINYL ESTRADIOL\ETONOGESTREL
     Indication: OVARIAN CYST
     Dosage: UNK
     Route: 067
     Dates: start: 20120522

REACTIONS (21)
  - Ovarian cyst ruptured [Unknown]
  - Ovarian cyst [Unknown]
  - Nausea [Unknown]
  - Vision blurred [Unknown]
  - Serotonin syndrome [Unknown]
  - Depression [Unknown]
  - Inappropriate schedule of drug administration [Unknown]
  - Knee operation [Unknown]
  - Deep vein thrombosis [Unknown]
  - Vaginitis bacterial [Unknown]
  - Off label use [Unknown]
  - Hysterectomy [Unknown]
  - Irritable bowel syndrome [Unknown]
  - Inguinal hernia repair [Unknown]
  - Thrombophlebitis superficial [Unknown]
  - Headache [Unknown]
  - Asthma [Unknown]
  - Heart rate increased [Recovered/Resolved]
  - Borderline personality disorder [Unknown]
  - Dehydration [Unknown]
  - Laparoscopy [Unknown]

NARRATIVE: CASE EVENT DATE: 201110
